FAERS Safety Report 13387697 (Version 1)
Quarter: 2017Q1

REPORT INFORMATION
  Report Type: Report from Study
  Country: US (occurrence: US)
  Receive Date: 20170330
  Receipt Date: 20170330
  Transmission Date: 20170429
  Serious: Yes (Hospitalization, Other)
  Sender: FDA-Public Use
  Company Number: US-ACTELION-A-NJ2016-142155

PATIENT
  Age: 34 Year
  Sex: Female

DRUGS (3)
  1. REVATIO [Concomitant]
     Active Substance: SILDENAFIL CITRATE
  2. OPSUMIT [Suspect]
     Active Substance: MACITENTAN
     Indication: PULMONARY HYPERTENSION
     Dosage: 10 MG, QD
     Route: 048
     Dates: start: 20151207
  3. TYVASO [Concomitant]
     Active Substance: TREPROSTINIL

REACTIONS (4)
  - Atrial septal defect [Unknown]
  - Throat irritation [Unknown]
  - Atrial septal defect repair [Unknown]
  - Headache [Unknown]
